FAERS Safety Report 24967953 (Version 2)
Quarter: 2025Q2

REPORT INFORMATION
  Report Type: Report from Study
  Country: GB (occurrence: GB)
  Receive Date: 20250214
  Receipt Date: 20250618
  Transmission Date: 20250717
  Serious: Yes (Hospitalization, Other)
  Sender: JOHNSON AND JOHNSON
  Company Number: GB-SANDOZ-NVSC2023GB148009, GB-CELLTRION INC.-2023GB019658, GB-ABBVIE-5680298

PATIENT
  Age: 88 Year
  Sex: Female
  Weight: 88 kg

DRUGS (22)
  1. REMICADE [Suspect]
     Active Substance: INFLIXIMAB
     Indication: Product used for unknown indication
     Route: 040
  2. REMICADE [Suspect]
     Active Substance: INFLIXIMAB
     Route: 040
  3. REMICADE [Suspect]
     Active Substance: INFLIXIMAB
     Route: 040
  4. REMICADE [Suspect]
     Active Substance: INFLIXIMAB
     Route: 040
  5. METHOTREXATE [Suspect]
     Active Substance: METHOTREXATE
     Indication: Colitis
  6. METHOTREXATE [Suspect]
     Active Substance: METHOTREXATE
     Indication: Colitis
  7. ADALIMUMAB [Suspect]
     Active Substance: ADALIMUMAB
     Indication: Product used for unknown indication
  8. ADALIMUMAB [Suspect]
     Active Substance: ADALIMUMAB
  9. ADALIMUMAB [Suspect]
     Active Substance: ADALIMUMAB
  10. INFLIXIMAB [Suspect]
     Active Substance: INFLIXIMAB
     Indication: Colitis
     Dates: end: 20230501
  11. INFLIXIMAB [Suspect]
     Active Substance: INFLIXIMAB
     Indication: Colitis
     Dosage: 10 MILLIGRAM/KILOGRAM, Q8WK
  12. INFLIXIMAB [Suspect]
     Active Substance: INFLIXIMAB
  13. INFLIXIMAB [Suspect]
     Active Substance: INFLIXIMAB
     Indication: Colitis
     Dosage: 10 MG/KG (EVERY 8 WEEKS)
     Dates: start: 20200407, end: 20230501
  14. INFLIXIMAB [Suspect]
     Active Substance: INFLIXIMAB
     Indication: Colitis
     Dosage: 7 MG/KG (EVERY 8 WEEKS)
     Dates: start: 20200407, end: 20230501
  15. INFLIXIMAB [Suspect]
     Active Substance: INFLIXIMAB
     Dosage: 7 MILLIGRAM/KILOGRAM, QW (CUMULATIVE DOSE TO FIRST REACTION: 199.821 MG/KG)
     Dates: start: 20200407, end: 20230501
  16. INFLIXIMAB [Suspect]
     Active Substance: INFLIXIMAB
  17. INFLIXIMAB [Suspect]
     Active Substance: INFLIXIMAB
  18. INFLIXIMAB [Suspect]
     Active Substance: INFLIXIMAB
  19. INFLIXIMAB [Suspect]
     Active Substance: INFLIXIMAB
  20. INFLIXIMAB [Suspect]
     Active Substance: INFLIXIMAB
  21. METHOTREXATE [Concomitant]
     Active Substance: METHOTREXATE
     Indication: Colitis
  22. METHOTREXATE [Concomitant]
     Active Substance: METHOTREXATE
     Indication: Colitis

REACTIONS (8)
  - Arthritis bacterial [Recovering/Resolving]
  - Sepsis [Recovering/Resolving]
  - Streptococcal infection [Recovering/Resolving]
  - Streptococcal sepsis [Recovering/Resolving]
  - Arthralgia [Recovering/Resolving]
  - Overdose [Unknown]
  - Product use in unapproved indication [Unknown]
  - Off label use [Unknown]

NARRATIVE: CASE EVENT DATE: 20230501
